FAERS Safety Report 5933074-7 (Version None)
Quarter: 2008Q4

REPORT INFORMATION
  Report Type: 
  Country: None (occurrence: None)
  Receive Date: 20081023
  Receipt Date: 20081014
  Transmission Date: 20090506
  Serious: Yes (Hospitalization, Other)
  Sender: FDA-Public Use
  Company Number: A-US2005-10402

PATIENT
  Age: 71 Year
  Sex: Male

DRUGS (28)
  1. TRACLEER [Suspect]
     Indication: PULMONARY HYPERTENSION
     Dosage: 125 MG, BID, ORAL 62.5 MG, BID, ORAL
     Route: 042
     Dates: start: 20050111, end: 20050210
  2. TRACLEER [Suspect]
     Indication: PULMONARY HYPERTENSION
     Dosage: 125 MG, BID, ORAL 62.5 MG, BID, ORAL
     Route: 042
     Dates: start: 20050211, end: 20080624
  3. HYDROCODONE BITARTRATE + ACETAMINOPHEN [Concomitant]
  4. ALBUTEROL W/IPRATROPIUM (SALBUTAMOL, IPRATROPIUM) [Concomitant]
  5. CARDIZEM [Concomitant]
  6. COUMADIN [Concomitant]
  7. DIAMOX [Concomitant]
  8. DIGOXIN [Concomitant]
  9. DOXAZOSIN (DOXAZOSIN) [Concomitant]
  10. FLOMAX [Concomitant]
  11. FLUNISOLIDE [Concomitant]
  12. IRON (IRON) [Concomitant]
  13. KLOR-CON [Concomitant]
  14. LANTUS [Concomitant]
  15. LASIX [Concomitant]
  16. LOVENOX [Concomitant]
  17. SILYBUM MARIANUM (SYLBIUM MARIANUM) [Concomitant]
  18. NITRO-DUR [Concomitant]
  19. NOVOLOG [Concomitant]
  20. CARBOXYMETHYLCELLULOSE SODIUM (CARMELLOSE SODIUM) [Concomitant]
  21. PLAVIX [Concomitant]
  22. PRESERVEX (ACECLOFENAC) [Concomitant]
  23. PREVACID [Concomitant]
  24. PROCHLORPERAZINE MALEATE [Concomitant]
  25. PULMICORT [Concomitant]
  26. RHINOCORT [Concomitant]
  27. SPIRONOLACTONE [Concomitant]
  28. XALATAN [Concomitant]

REACTIONS (3)
  - EPISTAXIS [None]
  - HEPATIC NEOPLASM MALIGNANT [None]
  - RED BLOOD CELL COUNT DECREASED [None]
